FAERS Safety Report 21676416 (Version 2)
Quarter: 2022Q4

REPORT INFORMATION
  Report Type: Report from Study
  Country: JP (occurrence: JP)
  Receive Date: 20221202
  Receipt Date: 20221208
  Transmission Date: 20230113
  Serious: Yes (Death, Hospitalization, Other)
  Sender: FDA-Public Use
  Company Number: JP-BRISTOL-MYERS SQUIBB COMPANY-2022-052028

PATIENT
  Age: 66 Year
  Sex: Male
  Weight: 57 kg

DRUGS (6)
  1. MODERNA COVID-19 VACCINE [Concomitant]
     Active Substance: ELASOMERAN
     Indication: COVID-19 prophylaxis
     Dosage: 3RD DOSE, FREQUENCY: ONCE
     Route: 030
     Dates: start: 20220425
  2. MAXACALCITOL [Concomitant]
     Active Substance: MAXACALCITOL
     Indication: Psoriasis
     Dosage: DOSE AMOUNT: 1 ?UNIT: APPLICATION ?FREQUENCY: BID (BD; TWICE PER DAY)
     Route: 061
     Dates: start: 20211207
  3. BETAMETHASONE BUTYRATE PROPIONATE [Concomitant]
     Active Substance: BETAMETHASONE BUTYRATE PROPIONATE
     Indication: Psoriasis
     Dosage: DOSE AMOUNT: 1 ?UNIT: APPLICATION ?FREQUENCY: BID (BD; TWICE PER DAY)
     Route: 061
     Dates: start: 20211207
  4. WHITE PETROLATUM [Concomitant]
     Active Substance: PETROLATUM
     Indication: Psoriasis
     Dosage: DOSE AMOUNT: 1 ?UNIT: APPLICATION ?FREQUENCY: BID (BD; TWICE PER DAY)
     Route: 061
     Dates: start: 20200107
  5. COMIRNATY [Concomitant]
     Active Substance: TOZINAMERAN
     Indication: COVID-19 prophylaxis
     Dosage: ONCE, 1 ST DOSE
     Route: 030
     Dates: start: 20210703, end: 20210703
  6. COMIRNATY [Concomitant]
     Active Substance: TOZINAMERAN
     Dosage: ONCE, SECOND DOSE
     Route: 030
     Dates: start: 20210724, end: 20210724

REACTIONS (1)
  - Gastric cancer [Fatal]

NARRATIVE: CASE EVENT DATE: 20220401
